FAERS Safety Report 6445388-5 (Version None)
Quarter: 2009Q4

REPORT INFORMATION
  Report Type: 
  Country: None (occurrence: None)
  Receive Date: 20091118
  Receipt Date: 20091105
  Transmission Date: 20100525
  Serious: Yes (Other)
  Sender: FDA-Public Use
  Company Number: PHHY2009AU48326

PATIENT
  Sex: Female

DRUGS (1)
  1. ACLASTA [Suspect]
     Dosage: UNK
     Dates: start: 20090625

REACTIONS (4)
  - ACTIVITIES OF DAILY LIVING IMPAIRED [None]
  - NECK PAIN [None]
  - NERVE INJURY [None]
  - PAIN IN EXTREMITY [None]
